FAERS Safety Report 23667283 (Version 5)
Quarter: 2025Q3

REPORT INFORMATION
  Report Type: Spontaneous
  Country: CA (occurrence: CA)
  Receive Date: 20240325
  Receipt Date: 20250827
  Transmission Date: 20251020
  Serious: Yes (Death, Life-Threatening, Hospitalization, Disabling, Other)
  Sender: Haleon PLC
  Company Number: CA-002147023-NVSC2024CA054138

PATIENT
  Age: 44 Year
  Sex: Female
  Weight: 97 kg

DRUGS (718)
  1. DICLOFENAC POTASSIUM [Suspect]
     Active Substance: DICLOFENAC POTASSIUM
     Indication: Product used for unknown indication
     Route: 048
  2. DICLOFENAC POTASSIUM [Suspect]
     Active Substance: DICLOFENAC POTASSIUM
  3. DICLOFENAC POTASSIUM [Suspect]
     Active Substance: DICLOFENAC POTASSIUM
  4. DICLOFENAC POTASSIUM [Suspect]
     Active Substance: DICLOFENAC POTASSIUM
     Route: 048
  5. DICLOFENAC POTASSIUM [Suspect]
     Active Substance: DICLOFENAC POTASSIUM
  6. DICLOFENAC POTASSIUM [Suspect]
     Active Substance: DICLOFENAC POTASSIUM
  7. DICLOFENAC POTASSIUM [Suspect]
     Active Substance: DICLOFENAC POTASSIUM
  8. DICLOFENAC POTASSIUM [Suspect]
     Active Substance: DICLOFENAC POTASSIUM
  9. DICLOFENAC POTASSIUM [Suspect]
     Active Substance: DICLOFENAC POTASSIUM
  10. DICLOFENAC POTASSIUM [Suspect]
     Active Substance: DICLOFENAC POTASSIUM
  11. CELECOXIB [Suspect]
     Active Substance: CELECOXIB
     Indication: Product used for unknown indication
     Dosage: ROA: UNKNOWN
  12. CELECOXIB [Suspect]
     Active Substance: CELECOXIB
     Indication: Arthritis
  13. CELECOXIB [Suspect]
     Active Substance: CELECOXIB
     Dosage: ROA: UNKNOWN
  14. CELECOXIB [Suspect]
     Active Substance: CELECOXIB
     Dosage: ROA: UNKNOWN
  15. CHLORAPREP [Suspect]
     Active Substance: CHLORHEXIDINE GLUCONATE\ISOPROPYL ALCOHOL
     Indication: Product used for unknown indication
  16. CHLORAPREP [Suspect]
     Active Substance: CHLORHEXIDINE GLUCONATE\ISOPROPYL ALCOHOL
  17. CHLORAPREP [Suspect]
     Active Substance: CHLORHEXIDINE GLUCONATE\ISOPROPYL ALCOHOL
     Route: 048
  18. CHLORAPREP [Suspect]
     Active Substance: CHLORHEXIDINE GLUCONATE\ISOPROPYL ALCOHOL
  19. FLUMETHASONE PIVALATE [Suspect]
     Active Substance: FLUMETHASONE PIVALATE
     Indication: Rheumatoid arthritis
     Route: 003
  20. FLUMETHASONE PIVALATE [Suspect]
     Active Substance: FLUMETHASONE PIVALATE
     Indication: Product used for unknown indication
  21. FLUMETHASONE PIVALATE [Suspect]
     Active Substance: FLUMETHASONE PIVALATE
  22. CALCIUM GLUBIONATE [Suspect]
     Active Substance: CALCIUM GLUBIONATE
     Indication: Product used for unknown indication
     Route: 016
  23. CALCIUM GLUBIONATE [Suspect]
     Active Substance: CALCIUM GLUBIONATE
  24. CALCIUM GLUBIONATE [Suspect]
     Active Substance: CALCIUM GLUBIONATE
  25. ALENDRONIC ACID [Suspect]
     Active Substance: ALENDRONIC ACID
     Indication: Rheumatoid arthritis
  26. ALENDRONIC ACID [Suspect]
     Active Substance: ALENDRONIC ACID
     Indication: Product used for unknown indication
     Route: 048
  27. ALENDRONIC ACID [Suspect]
     Active Substance: ALENDRONIC ACID
  28. ALENDRONIC ACID [Suspect]
     Active Substance: ALENDRONIC ACID
     Route: 016
  29. ALENDRONIC ACID [Suspect]
     Active Substance: ALENDRONIC ACID
  30. ALENDRONIC ACID [Suspect]
     Active Substance: ALENDRONIC ACID
  31. ALENDRONIC ACID [Suspect]
     Active Substance: ALENDRONIC ACID
     Route: 048
  32. ALENDRONIC ACID [Suspect]
     Active Substance: ALENDRONIC ACID
     Route: 048
  33. ALENDRONIC ACID [Suspect]
     Active Substance: ALENDRONIC ACID
  34. ALENDRONIC ACID [Suspect]
     Active Substance: ALENDRONIC ACID
  35. METHOTREXATE SODIUM [Suspect]
     Active Substance: METHOTREXATE SODIUM
     Indication: Rheumatoid arthritis
     Dosage: 20 MG, QD
     Route: 048
  36. METHOTREXATE SODIUM [Suspect]
     Active Substance: METHOTREXATE SODIUM
     Indication: Product used for unknown indication
     Route: 048
  37. METHOTREXATE SODIUM [Suspect]
     Active Substance: METHOTREXATE SODIUM
  38. METHOTREXATE SODIUM [Suspect]
     Active Substance: METHOTREXATE SODIUM
     Route: 048
  39. METHOTREXATE SODIUM [Suspect]
     Active Substance: METHOTREXATE SODIUM
     Dosage: 20 MG, WE (20 MG, QW)
     Route: 048
  40. METHOTREXATE SODIUM [Suspect]
     Active Substance: METHOTREXATE SODIUM
     Dosage: 25 MG, QD
     Route: 048
  41. METHOTREXATE SODIUM [Suspect]
     Active Substance: METHOTREXATE SODIUM
     Route: 048
  42. METHOTREXATE SODIUM [Suspect]
     Active Substance: METHOTREXATE SODIUM
     Dosage: 25 MG, WE (25 MG, QW)
     Route: 048
  43. METHOTREXATE SODIUM [Suspect]
     Active Substance: METHOTREXATE SODIUM
     Route: 048
  44. METHOTREXATE SODIUM [Suspect]
     Active Substance: METHOTREXATE SODIUM
     Dosage: 25 MG
     Route: 013
  45. METHOTREXATE SODIUM [Suspect]
     Active Substance: METHOTREXATE SODIUM
     Route: 048
  46. METHOTREXATE SODIUM [Suspect]
     Active Substance: METHOTREXATE SODIUM
     Route: 048
  47. METHOTREXATE SODIUM [Suspect]
     Active Substance: METHOTREXATE SODIUM
     Dosage: 15 MG, QD
     Route: 048
  48. METHOTREXATE SODIUM [Suspect]
     Active Substance: METHOTREXATE SODIUM
     Dosage: ROA: UNKNOWN
  49. METHOTREXATE SODIUM [Suspect]
     Active Substance: METHOTREXATE SODIUM
  50. METHOTREXATE SODIUM [Suspect]
     Active Substance: METHOTREXATE SODIUM
     Dosage: 2 G, QD
     Route: 048
  51. METHOTREXATE SODIUM [Suspect]
     Active Substance: METHOTREXATE SODIUM
     Dosage: 25 MG, WE (25 MG, QW)
     Route: 048
  52. METHOTREXATE SODIUM [Suspect]
     Active Substance: METHOTREXATE SODIUM
     Dosage: 20 MG
     Route: 048
  53. METHOTREXATE SODIUM [Suspect]
     Active Substance: METHOTREXATE SODIUM
     Dosage: 2 G, WE (2 G, QW)
     Route: 048
  54. METHOTREXATE SODIUM [Suspect]
     Active Substance: METHOTREXATE SODIUM
     Dosage: 20 MG, WE (20 MG, QW)
     Route: 048
  55. NAPROXEN SODIUM [Suspect]
     Active Substance: NAPROXEN SODIUM
     Indication: Rheumatoid arthritis
     Dosage: 1000 MG, QD (500 MG, BID), ROA: UNKNOWN
  56. NAPROXEN SODIUM [Suspect]
     Active Substance: NAPROXEN SODIUM
     Indication: Product used for unknown indication
  57. MYCOPHENOLATE MOFETIL [Suspect]
     Active Substance: MYCOPHENOLATE MOFETIL
     Indication: Product used for unknown indication
  58. ENTYVIO [Suspect]
     Active Substance: VEDOLIZUMAB
     Indication: Product used for unknown indication
  59. DILTIAZEM HYDROCHLORIDE [Suspect]
     Active Substance: DILTIAZEM HYDROCHLORIDE
     Indication: Product used for unknown indication
  60. DILTIAZEM HYDROCHLORIDE [Suspect]
     Active Substance: DILTIAZEM HYDROCHLORIDE
     Route: 042
  61. LYRICA [Suspect]
     Active Substance: PREGABALIN
     Indication: Product used for unknown indication
  62. REMICADE [Suspect]
     Active Substance: INFLIXIMAB
     Indication: Product used for unknown indication
  63. REMICADE [Suspect]
     Active Substance: INFLIXIMAB
     Indication: Rheumatoid arthritis
     Route: 042
  64. REMICADE [Suspect]
     Active Substance: INFLIXIMAB
     Route: 042
  65. ISOPROPYL ALCOHOL [Suspect]
     Active Substance: ISOPROPYL ALCOHOL
     Indication: Product used for unknown indication
  66. ISOPROPYL ALCOHOL [Suspect]
     Active Substance: ISOPROPYL ALCOHOL
  67. ISOPROPYL ALCOHOL [Suspect]
     Active Substance: ISOPROPYL ALCOHOL
  68. PREDNISOLONE [Suspect]
     Active Substance: PREDNISOLONE
     Indication: Product used for unknown indication
  69. PREDNISOLONE [Suspect]
     Active Substance: PREDNISOLONE
     Dosage: DOSE FORM: UNKNOWN
     Route: 048
  70. PREDNISOLONE [Suspect]
     Active Substance: PREDNISOLONE
     Route: 048
  71. PREDNISOLONE [Suspect]
     Active Substance: PREDNISOLONE
  72. DICLOFENAC [Suspect]
     Active Substance: DICLOFENAC
     Indication: Product used for unknown indication
  73. DICLOFENAC [Suspect]
     Active Substance: DICLOFENAC
     Dosage: ROA: UNKNOWN
  74. PREDNISONE [Suspect]
     Active Substance: PREDNISONE
     Indication: Psoriatic arthropathy
  75. PREDNISONE [Suspect]
     Active Substance: PREDNISONE
     Indication: Rheumatoid arthritis
  76. PREDNISONE [Suspect]
     Active Substance: PREDNISONE
     Indication: Condition aggravated
  77. PREDNISONE [Suspect]
     Active Substance: PREDNISONE
     Indication: Product used for unknown indication
     Route: 048
  78. PREDNISONE [Suspect]
     Active Substance: PREDNISONE
  79. PREDNISONE [Suspect]
     Active Substance: PREDNISONE
     Route: 048
  80. PREDNISONE [Suspect]
     Active Substance: PREDNISONE
     Route: 048
  81. PREDNISONE [Suspect]
     Active Substance: PREDNISONE
     Route: 048
  82. PREDNISONE [Suspect]
     Active Substance: PREDNISONE
     Route: 042
  83. PREDNISONE [Suspect]
     Active Substance: PREDNISONE
     Route: 048
  84. PREDNISONE [Suspect]
     Active Substance: PREDNISONE
     Route: 048
  85. PREDNISONE [Suspect]
     Active Substance: PREDNISONE
  86. PREDNISONE [Suspect]
     Active Substance: PREDNISONE
  87. PREDNISONE [Suspect]
     Active Substance: PREDNISONE
  88. PREDNISONE [Suspect]
     Active Substance: PREDNISONE
  89. PREDNISONE [Suspect]
     Active Substance: PREDNISONE
  90. CHLORAPREP [Suspect]
     Active Substance: CHLORHEXIDINE GLUCONATE\ISOPROPYL ALCOHOL
     Indication: Product used for unknown indication
     Route: 048
  91. CHLORAPREP [Suspect]
     Active Substance: CHLORHEXIDINE GLUCONATE\ISOPROPYL ALCOHOL
  92. CHLORAPREP [Suspect]
     Active Substance: CHLORHEXIDINE GLUCONATE\ISOPROPYL ALCOHOL
  93. CHLORAPREP [Suspect]
     Active Substance: CHLORHEXIDINE GLUCONATE\ISOPROPYL ALCOHOL
  94. FOLIC ACID [Suspect]
     Active Substance: FOLIC ACID
     Indication: Rheumatoid arthritis
  95. FOLIC ACID [Suspect]
     Active Substance: FOLIC ACID
     Indication: Product used for unknown indication
  96. FOLIC ACID [Suspect]
     Active Substance: FOLIC ACID
  97. FOLIC ACID [Suspect]
     Active Substance: FOLIC ACID
     Route: 048
  98. FOLIC ACID [Suspect]
     Active Substance: FOLIC ACID
  99. FOLIC ACID [Suspect]
     Active Substance: FOLIC ACID
  100. FOLIC ACID [Suspect]
     Active Substance: FOLIC ACID
  101. FOLIC ACID [Suspect]
     Active Substance: FOLIC ACID
  102. FOLIC ACID [Suspect]
     Active Substance: FOLIC ACID
  103. FOLIC ACID [Suspect]
     Active Substance: FOLIC ACID
  104. FOLIC ACID [Suspect]
     Active Substance: FOLIC ACID
     Route: 048
  105. FOLIC ACID [Suspect]
     Active Substance: FOLIC ACID
     Route: 048
  106. FOLIC ACID [Suspect]
     Active Substance: FOLIC ACID
  107. FOLIC ACID [Suspect]
     Active Substance: FOLIC ACID
  108. FOLIC ACID [Suspect]
     Active Substance: FOLIC ACID
     Route: 048
  109. FOLIC ACID [Suspect]
     Active Substance: FOLIC ACID
  110. FOLIC ACID [Suspect]
     Active Substance: FOLIC ACID
     Dosage: ROA: UNKNOWN
  111. FOLIC ACID [Suspect]
     Active Substance: FOLIC ACID
  112. FOLIC ACID [Suspect]
     Active Substance: FOLIC ACID
     Route: 048
  113. FOLIC ACID [Suspect]
     Active Substance: FOLIC ACID
  114. FOLIC ACID [Suspect]
     Active Substance: FOLIC ACID
  115. FOLIC ACID [Suspect]
     Active Substance: FOLIC ACID
  116. FOLIC ACID [Suspect]
     Active Substance: FOLIC ACID
  117. FOLIC ACID [Suspect]
     Active Substance: FOLIC ACID
  118. CHLORHEXIDINE GLUCONATE [Suspect]
     Active Substance: CHLORHEXIDINE GLUCONATE
     Indication: Product used for unknown indication
  119. CHLORHEXIDINE GLUCONATE [Suspect]
     Active Substance: CHLORHEXIDINE GLUCONATE
     Route: 048
  120. CHLORHEXIDINE GLUCONATE [Suspect]
     Active Substance: CHLORHEXIDINE GLUCONATE
  121. CHLORHEXIDINE GLUCONATE [Suspect]
     Active Substance: CHLORHEXIDINE GLUCONATE
  122. CHLORHEXIDINE GLUCONATE [Suspect]
     Active Substance: CHLORHEXIDINE GLUCONATE
  123. CHLORHEXIDINE GLUCONATE [Suspect]
     Active Substance: CHLORHEXIDINE GLUCONATE
  124. CHLORHEXIDINE GLUCONATE [Suspect]
     Active Substance: CHLORHEXIDINE GLUCONATE
  125. CHLORHEXIDINE GLUCONATE [Suspect]
     Active Substance: CHLORHEXIDINE GLUCONATE
     Route: 002
  126. CHLORHEXIDINE GLUCONATE [Suspect]
     Active Substance: CHLORHEXIDINE GLUCONATE
  127. CHLORHEXIDINE GLUCONATE [Suspect]
     Active Substance: CHLORHEXIDINE GLUCONATE
  128. CHLORHEXIDINE GLUCONATE [Suspect]
     Active Substance: CHLORHEXIDINE GLUCONATE
  129. CHLORHEXIDINE GLUCONATE [Suspect]
     Active Substance: CHLORHEXIDINE GLUCONATE
  130. CHLORHEXIDINE GLUCONATE [Suspect]
     Active Substance: CHLORHEXIDINE GLUCONATE
  131. CHLORHEXIDINE GLUCONATE [Suspect]
     Active Substance: CHLORHEXIDINE GLUCONATE
  132. CHLORHEXIDINE GLUCONATE [Suspect]
     Active Substance: CHLORHEXIDINE GLUCONATE
  133. CHLORHEXIDINE GLUCONATE [Suspect]
     Active Substance: CHLORHEXIDINE GLUCONATE
  134. CHLORHEXIDINE GLUCONATE [Suspect]
     Active Substance: CHLORHEXIDINE GLUCONATE
  135. TUMS REGULAR STRENGTH [Suspect]
     Active Substance: CALCIUM CARBONATE
     Indication: Product used for unknown indication
  136. TUMS REGULAR STRENGTH [Suspect]
     Active Substance: CALCIUM CARBONATE
  137. TUMS REGULAR STRENGTH [Suspect]
     Active Substance: CALCIUM CARBONATE
  138. OXYCODONE [Suspect]
     Active Substance: OXYCODONE
     Indication: Product used for unknown indication
  139. OXYCODONE [Suspect]
     Active Substance: OXYCODONE
  140. COSENTYX [Suspect]
     Active Substance: SECUKINUMAB
     Indication: Rheumatoid arthritis
     Route: 042
  141. COSENTYX [Suspect]
     Active Substance: SECUKINUMAB
     Indication: Product used for unknown indication
     Route: 042
  142. COSENTYX [Suspect]
     Active Substance: SECUKINUMAB
     Indication: Psoriatic arthropathy
     Route: 005
  143. COSENTYX [Suspect]
     Active Substance: SECUKINUMAB
     Route: 042
  144. COSENTYX [Suspect]
     Active Substance: SECUKINUMAB
     Route: 005
  145. COSENTYX [Suspect]
     Active Substance: SECUKINUMAB
     Route: 042
  146. VOLTAREN [Suspect]
     Active Substance: DICLOFENAC SODIUM
     Indication: Product used for unknown indication
  147. VOLTAREN [Suspect]
     Active Substance: DICLOFENAC SODIUM
  148. VOLTAREN [Suspect]
     Active Substance: DICLOFENAC SODIUM
  149. VOLTAREN [Suspect]
     Active Substance: DICLOFENAC SODIUM
  150. VOLTAREN [Suspect]
     Active Substance: DICLOFENAC SODIUM
  151. VOLTAREN [Suspect]
     Active Substance: DICLOFENAC SODIUM
     Route: 048
  152. VOLTAREN [Suspect]
     Active Substance: DICLOFENAC SODIUM
  153. VOLTAREN [Suspect]
     Active Substance: DICLOFENAC SODIUM
  154. VOLTAREN [Suspect]
     Active Substance: DICLOFENAC SODIUM
  155. DICLOFENAC SODIUM [Suspect]
     Active Substance: DICLOFENAC SODIUM
     Indication: Product used for unknown indication
  156. DICLOFENAC SODIUM [Suspect]
     Active Substance: DICLOFENAC SODIUM
  157. DICLOFENAC SODIUM [Suspect]
     Active Substance: DICLOFENAC SODIUM
     Route: 048
  158. SULFASALAZINE [Suspect]
     Active Substance: SULFASALAZINE
     Indication: Rheumatoid arthritis
     Route: 048
  159. SULFASALAZINE [Suspect]
     Active Substance: SULFASALAZINE
     Route: 048
  160. SULFASALAZINE [Suspect]
     Active Substance: SULFASALAZINE
     Route: 048
  161. SULFASALAZINE [Suspect]
     Active Substance: SULFASALAZINE
     Route: 048
  162. SULFASALAZINE [Suspect]
     Active Substance: SULFASALAZINE
     Route: 048
  163. SULFASALAZINE [Suspect]
     Active Substance: SULFASALAZINE
     Route: 048
  164. SULFASALAZINE [Suspect]
     Active Substance: SULFASALAZINE
  165. SULFASALAZINE [Suspect]
     Active Substance: SULFASALAZINE
     Route: 048
  166. SULFASALAZINE [Suspect]
     Active Substance: SULFASALAZINE
     Route: 048
  167. SULFASALAZINE [Suspect]
     Active Substance: SULFASALAZINE
     Route: 048
  168. SULFASALAZINE [Suspect]
     Active Substance: SULFASALAZINE
     Route: 048
  169. SULFASALAZINE [Suspect]
     Active Substance: SULFASALAZINE
     Route: 048
  170. SULFASALAZINE [Suspect]
     Active Substance: SULFASALAZINE
     Route: 048
  171. SULFASALAZINE [Suspect]
     Active Substance: SULFASALAZINE
  172. SULFASALAZINE [Suspect]
     Active Substance: SULFASALAZINE
     Route: 048
  173. SULFASALAZINE [Suspect]
     Active Substance: SULFASALAZINE
     Route: 048
  174. SULFASALAZINE [Suspect]
     Active Substance: SULFASALAZINE
  175. SULFASALAZINE [Suspect]
     Active Substance: SULFASALAZINE
     Route: 048
  176. SULFASALAZINE [Suspect]
     Active Substance: SULFASALAZINE
  177. SULFASALAZINE [Suspect]
     Active Substance: SULFASALAZINE
     Route: 048
  178. SULFASALAZINE [Suspect]
     Active Substance: SULFASALAZINE
     Route: 048
  179. SULFASALAZINE [Suspect]
     Active Substance: SULFASALAZINE
     Route: 048
  180. SULFASALAZINE [Suspect]
     Active Substance: SULFASALAZINE
     Route: 048
  181. SULFASALAZINE [Suspect]
     Active Substance: SULFASALAZINE
     Dosage: DURATION 365 DAYS
     Route: 048
  182. SULFASALAZINE [Suspect]
     Active Substance: SULFASALAZINE
  183. SULFASALAZINE [Suspect]
     Active Substance: SULFASALAZINE
     Route: 048
  184. SULFASALAZINE [Suspect]
     Active Substance: SULFASALAZINE
     Route: 048
  185. SULFASALAZINE [Suspect]
     Active Substance: SULFASALAZINE
     Dosage: ROA: UNKNOWN
  186. SULFASALAZINE [Suspect]
     Active Substance: SULFASALAZINE
     Dosage: ROA: UNKNOWN
  187. SULFASALAZINE [Suspect]
     Active Substance: SULFASALAZINE
  188. SULFASALAZINE [Suspect]
     Active Substance: SULFASALAZINE
     Dosage: ROA: UNKNOWN
  189. SULFASALAZINE [Suspect]
     Active Substance: SULFASALAZINE
  190. SULFASALAZINE [Suspect]
     Active Substance: SULFASALAZINE
  191. SULFASALAZINE [Suspect]
     Active Substance: SULFASALAZINE
  192. SULFASALAZINE [Suspect]
     Active Substance: SULFASALAZINE
     Route: 048
  193. SULFASALAZINE [Suspect]
     Active Substance: SULFASALAZINE
  194. SULFASALAZINE [Suspect]
     Active Substance: SULFASALAZINE
  195. SULFASALAZINE [Suspect]
     Active Substance: SULFASALAZINE
  196. SULFASALAZINE [Suspect]
     Active Substance: SULFASALAZINE
  197. SULFASALAZINE [Suspect]
     Active Substance: SULFASALAZINE
  198. SULFASALAZINE [Suspect]
     Active Substance: SULFASALAZINE
  199. SULFASALAZINE [Suspect]
     Active Substance: SULFASALAZINE
  200. SULFASALAZINE [Suspect]
     Active Substance: SULFASALAZINE
  201. SULFASALAZINE [Suspect]
     Active Substance: SULFASALAZINE
     Route: 048
  202. DICLOFENAC [Suspect]
     Active Substance: DICLOFENAC
     Indication: Product used for unknown indication
     Route: 048
  203. DICLOFENAC [Suspect]
     Active Substance: DICLOFENAC
  204. DICLOFENAC [Suspect]
     Active Substance: DICLOFENAC
     Route: 031
  205. DICLOFENAC [Suspect]
     Active Substance: DICLOFENAC
  206. ALENDRONATE SODIUM [Suspect]
     Active Substance: ALENDRONATE SODIUM
     Indication: Rheumatoid arthritis
     Route: 048
  207. ALENDRONATE SODIUM [Suspect]
     Active Substance: ALENDRONATE SODIUM
     Route: 048
  208. ALENDRONATE SODIUM [Suspect]
     Active Substance: ALENDRONATE SODIUM
  209. ALENDRONATE SODIUM [Suspect]
     Active Substance: ALENDRONATE SODIUM
  210. ADALIMUMAB [Suspect]
     Active Substance: ADALIMUMAB
     Indication: Rheumatoid arthritis
  211. ADALIMUMAB [Suspect]
     Active Substance: ADALIMUMAB
     Indication: Psoriatic arthropathy
     Route: 048
  212. ADALIMUMAB [Suspect]
     Active Substance: ADALIMUMAB
     Indication: Product used for unknown indication
  213. ADALIMUMAB [Suspect]
     Active Substance: ADALIMUMAB
     Route: 042
  214. ADALIMUMAB [Suspect]
     Active Substance: ADALIMUMAB
  215. ADALIMUMAB [Suspect]
     Active Substance: ADALIMUMAB
  216. PREDNISONE [Suspect]
     Active Substance: PREDNISONE
     Indication: Rheumatoid arthritis
     Route: 048
  217. APREPITANT [Suspect]
     Active Substance: APREPITANT
     Indication: Product used for unknown indication
     Route: 042
  218. APREPITANT [Suspect]
     Active Substance: APREPITANT
     Route: 042
  219. APREPITANT [Suspect]
     Active Substance: APREPITANT
     Route: 048
  220. APREPITANT [Suspect]
     Active Substance: APREPITANT
  221. APREPITANT [Suspect]
     Active Substance: APREPITANT
     Route: 042
  222. DESOXIMETASONE [Suspect]
     Active Substance: DESOXIMETASONE
     Indication: Rheumatoid arthritis
     Route: 048
  223. DESOXIMETASONE [Suspect]
     Active Substance: DESOXIMETASONE
     Indication: Product used for unknown indication
  224. DESOXIMETASONE [Suspect]
     Active Substance: DESOXIMETASONE
  225. DESOXIMETASONE [Suspect]
     Active Substance: DESOXIMETASONE
  226. DESOXIMETASONE [Suspect]
     Active Substance: DESOXIMETASONE
  227. DESOXIMETASONE [Suspect]
     Active Substance: DESOXIMETASONE
  228. DESOXIMETASONE [Suspect]
     Active Substance: DESOXIMETASONE
  229. DESOXIMETASONE [Suspect]
     Active Substance: DESOXIMETASONE
  230. DESOXIMETASONE [Suspect]
     Active Substance: DESOXIMETASONE
     Route: 048
  231. DESOXIMETASONE [Suspect]
     Active Substance: DESOXIMETASONE
  232. DESOXIMETASONE [Suspect]
     Active Substance: DESOXIMETASONE
     Route: 048
  233. DESOXIMETASONE [Suspect]
     Active Substance: DESOXIMETASONE
  234. DESOXIMETASONE [Suspect]
     Active Substance: DESOXIMETASONE
  235. DESOXIMETASONE [Suspect]
     Active Substance: DESOXIMETASONE
     Route: 048
  236. DESOXIMETASONE [Suspect]
     Active Substance: DESOXIMETASONE
     Route: 042
  237. DESOXIMETASONE [Suspect]
     Active Substance: DESOXIMETASONE
  238. DESOXIMETASONE [Suspect]
     Active Substance: DESOXIMETASONE
     Dosage: 25 MG, WE (25 MG, QW)
     Route: 048
  239. DESOXIMETASONE [Suspect]
     Active Substance: DESOXIMETASONE
     Route: 058
  240. DESOXIMETASONE [Suspect]
     Active Substance: DESOXIMETASONE
  241. DESOXIMETASONE [Suspect]
     Active Substance: DESOXIMETASONE
     Route: 003
  242. DESOXIMETASONE [Suspect]
     Active Substance: DESOXIMETASONE
     Route: 042
  243. DESOXIMETASONE [Suspect]
     Active Substance: DESOXIMETASONE
  244. DESOXIMETASONE [Suspect]
     Active Substance: DESOXIMETASONE
  245. DESOXIMETASONE [Suspect]
     Active Substance: DESOXIMETASONE
     Route: 048
  246. DESOXIMETASONE [Suspect]
     Active Substance: DESOXIMETASONE
     Route: 048
  247. DESOXIMETASONE [Suspect]
     Active Substance: DESOXIMETASONE
  248. DESOXIMETASONE [Suspect]
     Active Substance: DESOXIMETASONE
  249. DESOXIMETASONE [Suspect]
     Active Substance: DESOXIMETASONE
     Route: 048
  250. DESOXIMETASONE [Suspect]
     Active Substance: DESOXIMETASONE
  251. DESOXIMETASONE [Suspect]
     Active Substance: DESOXIMETASONE
  252. DESOXIMETASONE [Suspect]
     Active Substance: DESOXIMETASONE
     Route: 048
  253. DESOXIMETASONE [Suspect]
     Active Substance: DESOXIMETASONE
     Route: 048
  254. DESOXIMETASONE [Suspect]
     Active Substance: DESOXIMETASONE
  255. DESOXIMETASONE [Suspect]
     Active Substance: DESOXIMETASONE
     Dosage: (UNK, QW)
     Route: 048
  256. DESOXIMETASONE [Suspect]
     Active Substance: DESOXIMETASONE
  257. DESOXIMETASONE [Suspect]
     Active Substance: DESOXIMETASONE
  258. DESOXIMETASONE [Suspect]
     Active Substance: DESOXIMETASONE
  259. DESOXIMETASONE [Suspect]
     Active Substance: DESOXIMETASONE
  260. DESOXIMETASONE [Suspect]
     Active Substance: DESOXIMETASONE
  261. DESOXIMETASONE [Suspect]
     Active Substance: DESOXIMETASONE
     Route: 048
  262. DESOXIMETASONE [Suspect]
     Active Substance: DESOXIMETASONE
  263. DESOXIMETASONE [Suspect]
     Active Substance: DESOXIMETASONE
  264. DESOXIMETASONE [Suspect]
     Active Substance: DESOXIMETASONE
  265. DESOXIMETASONE [Suspect]
     Active Substance: DESOXIMETASONE
  266. DESOXIMETASONE [Suspect]
     Active Substance: DESOXIMETASONE
  267. DESOXIMETASONE [Suspect]
     Active Substance: DESOXIMETASONE
  268. DESOXIMETASONE [Suspect]
     Active Substance: DESOXIMETASONE
     Dosage: (UNK, QW)
     Route: 048
  269. DESOXIMETASONE [Suspect]
     Active Substance: DESOXIMETASONE
     Dosage: 25 MG
  270. APREMILAST [Suspect]
     Active Substance: APREMILAST
     Indication: Product used for unknown indication
  271. APREMILAST [Suspect]
     Active Substance: APREMILAST
     Route: 048
  272. DICLOFENAC [Suspect]
     Active Substance: DICLOFENAC
     Indication: Product used for unknown indication
  273. DICLOFENAC [Suspect]
     Active Substance: DICLOFENAC
  274. DICLOFENAC [Suspect]
     Active Substance: DICLOFENAC
  275. DICLOFENAC [Suspect]
     Active Substance: DICLOFENAC
     Route: 048
  276. DICLOFENAC [Suspect]
     Active Substance: DICLOFENAC
  277. DICLOFENAC [Suspect]
     Active Substance: DICLOFENAC
  278. ONEALFA [Suspect]
     Active Substance: ALFACALCIDOL
     Indication: Product used for unknown indication
  279. PANTOPRAZOLE [Suspect]
     Active Substance: PANTOPRAZOLE
     Indication: Product used for unknown indication
  280. PANTOPRAZOLE [Suspect]
     Active Substance: PANTOPRAZOLE
     Route: 016
  281. ALENDRONATE SODIUM [Suspect]
     Active Substance: ALENDRONATE SODIUM
     Indication: Product used for unknown indication
     Route: 048
  282. ALENDRONATE SODIUM [Suspect]
     Active Substance: ALENDRONATE SODIUM
     Indication: Rheumatoid arthritis
     Route: 048
  283. ALENDRONATE SODIUM [Suspect]
     Active Substance: ALENDRONATE SODIUM
  284. CELEBREX [Suspect]
     Active Substance: CELECOXIB
     Indication: Arthritis
  285. CELEBREX [Suspect]
     Active Substance: CELECOXIB
     Indication: Rheumatoid arthritis
     Dosage: 1 DF, QD (1 DOSAGE FORM, QD)
     Route: 048
  286. CELEBREX [Suspect]
     Active Substance: CELECOXIB
     Route: 048
  287. CELEBREX [Suspect]
     Active Substance: CELECOXIB
     Dosage: 2 DF, QW
     Route: 048
  288. CELEBREX [Suspect]
     Active Substance: CELECOXIB
     Route: 048
  289. CELEBREX [Suspect]
     Active Substance: CELECOXIB
  290. OXYCODONE HYDROCHLORIDE [Suspect]
     Active Substance: OXYCODONE HYDROCHLORIDE
     Indication: Product used for unknown indication
  291. OXYCODONE HYDROCHLORIDE [Suspect]
     Active Substance: OXYCODONE HYDROCHLORIDE
  292. HUMIRA [Suspect]
     Active Substance: ADALIMUMAB
     Indication: Rheumatoid arthritis
  293. HUMIRA [Suspect]
     Active Substance: ADALIMUMAB
     Indication: Psoriatic arthropathy
  294. HUMIRA [Suspect]
     Active Substance: ADALIMUMAB
     Indication: Product used for unknown indication
  295. HUMIRA [Suspect]
     Active Substance: ADALIMUMAB
  296. HUMIRA [Suspect]
     Active Substance: ADALIMUMAB
  297. RITUXIMAB [Suspect]
     Active Substance: RITUXIMAB
     Indication: Rheumatoid arthritis
  298. RITUXIMAB [Suspect]
     Active Substance: RITUXIMAB
     Indication: Abdominal discomfort
  299. RITUXIMAB [Suspect]
     Active Substance: RITUXIMAB
     Route: 042
  300. RITUXIMAB [Suspect]
     Active Substance: RITUXIMAB
  301. RITUXIMAB [Suspect]
     Active Substance: RITUXIMAB
  302. RITUXIMAB [Suspect]
     Active Substance: RITUXIMAB
  303. RITUXIMAB [Suspect]
     Active Substance: RITUXIMAB
     Route: 042
  304. RITUXIMAB [Suspect]
     Active Substance: RITUXIMAB
  305. RITUXIMAB [Suspect]
     Active Substance: RITUXIMAB
  306. RITUXIMAB [Suspect]
     Active Substance: RITUXIMAB
  307. RITUXIMAB [Suspect]
     Active Substance: RITUXIMAB
  308. DICLOFENAC DIETHYLAMINE [Suspect]
     Active Substance: DICLOFENAC DIETHYLAMINE
     Indication: Product used for unknown indication
  309. DICLOFENAC DIETHYLAMINE [Suspect]
     Active Substance: DICLOFENAC DIETHYLAMINE
  310. OXYCODONE AND ACETAMINOPHEN [Suspect]
     Active Substance: ACETAMINOPHEN\OXYCODONE HYDROCHLORIDE
     Indication: Product used for unknown indication
  311. TRIAMCINOLONE ACETONIDE [Suspect]
     Active Substance: TRIAMCINOLONE ACETONIDE
     Indication: Rheumatoid arthritis
     Route: 014
  312. CIMZIA [Suspect]
     Active Substance: CERTOLIZUMAB PEGOL
     Indication: Psoriatic arthropathy
     Route: 005
  313. CIMZIA [Suspect]
     Active Substance: CERTOLIZUMAB PEGOL
     Indication: Psoriasis
  314. CIMZIA [Suspect]
     Active Substance: CERTOLIZUMAB PEGOL
     Indication: Rheumatoid arthritis
  315. CIMZIA [Suspect]
     Active Substance: CERTOLIZUMAB PEGOL
     Indication: Product used for unknown indication
  316. CIMZIA [Suspect]
     Active Substance: CERTOLIZUMAB PEGOL
  317. CIMZIA [Suspect]
     Active Substance: CERTOLIZUMAB PEGOL
  318. CIMZIA [Suspect]
     Active Substance: CERTOLIZUMAB PEGOL
     Route: 042
  319. CIMZIA [Suspect]
     Active Substance: CERTOLIZUMAB PEGOL
     Route: 005
  320. CIMZIA [Suspect]
     Active Substance: CERTOLIZUMAB PEGOL
  321. CIMZIA [Suspect]
     Active Substance: CERTOLIZUMAB PEGOL
  322. CIMZIA [Suspect]
     Active Substance: CERTOLIZUMAB PEGOL
  323. CIMZIA [Suspect]
     Active Substance: CERTOLIZUMAB PEGOL
     Route: 042
  324. CIMZIA [Suspect]
     Active Substance: CERTOLIZUMAB PEGOL
  325. CIMZIA [Suspect]
     Active Substance: CERTOLIZUMAB PEGOL
  326. CIMZIA [Suspect]
     Active Substance: CERTOLIZUMAB PEGOL
  327. CIMZIA [Suspect]
     Active Substance: CERTOLIZUMAB PEGOL
     Route: 058
  328. CIMZIA [Suspect]
     Active Substance: CERTOLIZUMAB PEGOL
  329. CIMZIA [Suspect]
     Active Substance: CERTOLIZUMAB PEGOL
  330. CIMZIA [Suspect]
     Active Substance: CERTOLIZUMAB PEGOL
  331. CIMZIA [Suspect]
     Active Substance: CERTOLIZUMAB PEGOL
  332. CIMZIA [Suspect]
     Active Substance: CERTOLIZUMAB PEGOL
     Dosage: 1 DF, ROA: UNKNOWN
  333. CIMZIA [Suspect]
     Active Substance: CERTOLIZUMAB PEGOL
     Route: 005
  334. ACTEMRA [Suspect]
     Active Substance: TOCILIZUMAB
     Indication: Rheumatoid arthritis
     Route: 042
  335. ACTEMRA [Suspect]
     Active Substance: TOCILIZUMAB
     Indication: Product used for unknown indication
  336. ACTEMRA [Suspect]
     Active Substance: TOCILIZUMAB
     Route: 058
  337. ACTEMRA [Suspect]
     Active Substance: TOCILIZUMAB
  338. ACTEMRA [Suspect]
     Active Substance: TOCILIZUMAB
     Route: 016
  339. ACTEMRA [Suspect]
     Active Substance: TOCILIZUMAB
     Route: 042
  340. ACTEMRA [Suspect]
     Active Substance: TOCILIZUMAB
     Route: 058
  341. ACTEMRA [Suspect]
     Active Substance: TOCILIZUMAB
     Route: 042
  342. ACTEMRA [Suspect]
     Active Substance: TOCILIZUMAB
  343. ACTEMRA [Suspect]
     Active Substance: TOCILIZUMAB
     Route: 016
  344. ACTEMRA [Suspect]
     Active Substance: TOCILIZUMAB
     Dosage: UNK,
     Route: 058
  345. ACTEMRA [Suspect]
     Active Substance: TOCILIZUMAB
     Dosage: 752 MG, WE (752 MG, QW), DOSE FORM: UNKNOWN
  346. ACTEMRA [Suspect]
     Active Substance: TOCILIZUMAB
  347. ACTEMRA [Suspect]
     Active Substance: TOCILIZUMAB
     Route: 016
  348. ACTEMRA [Suspect]
     Active Substance: TOCILIZUMAB
     Dosage: 2912 MG, WE (2912 MG, QW), DOSE FORM: UNKNOWN, ROA: UNKNOWN
  349. ACTEMRA [Suspect]
     Active Substance: TOCILIZUMAB
     Dosage: 1 DF, WE (1 DOSAGE FORM, QW), DOSE FORM: UNKNOWN, ROA: SUBCUTANEOUS
  350. ACTEMRA [Suspect]
     Active Substance: TOCILIZUMAB
     Route: 048
  351. ACTEMRA [Suspect]
     Active Substance: TOCILIZUMAB
     Dosage: 1 DF, WE (1 DOSAGE FORM, QW), DOSE FORM: UNKNOWN
     Route: 042
  352. ACTEMRA [Suspect]
     Active Substance: TOCILIZUMAB
     Route: 042
  353. ACTEMRA [Suspect]
     Active Substance: TOCILIZUMAB
     Route: 042
  354. ACTEMRA [Suspect]
     Active Substance: TOCILIZUMAB
     Route: 048
  355. ACTEMRA [Suspect]
     Active Substance: TOCILIZUMAB
     Dosage: UNK UNK, WE (UNK, QW), DOSE FORM: UNKNOWN, ROA: SUBCUTANEOUS
  356. ACTEMRA [Suspect]
     Active Substance: TOCILIZUMAB
     Route: 042
  357. ACTEMRA [Suspect]
     Active Substance: TOCILIZUMAB
     Route: 042
  358. ACTEMRA [Suspect]
     Active Substance: TOCILIZUMAB
  359. ACTEMRA [Suspect]
     Active Substance: TOCILIZUMAB
     Route: 042
  360. ACTEMRA [Suspect]
     Active Substance: TOCILIZUMAB
     Dosage: 3011.2 MG, WE (3011.2 MG, QW)
     Route: 058
  361. ACTEMRA [Suspect]
     Active Substance: TOCILIZUMAB
     Route: 016
  362. ACTEMRA [Suspect]
     Active Substance: TOCILIZUMAB
  363. ACTEMRA [Suspect]
     Active Substance: TOCILIZUMAB
     Route: 042
  364. ACTEMRA [Suspect]
     Active Substance: TOCILIZUMAB
     Route: 042
  365. ACTEMRA [Suspect]
     Active Substance: TOCILIZUMAB
     Route: 016
  366. ACTEMRA [Suspect]
     Active Substance: TOCILIZUMAB
  367. ACTEMRA [Suspect]
     Active Substance: TOCILIZUMAB
     Route: 058
  368. ACTEMRA [Suspect]
     Active Substance: TOCILIZUMAB
     Route: 042
  369. ACTEMRA [Suspect]
     Active Substance: TOCILIZUMAB
  370. ACTEMRA [Suspect]
     Active Substance: TOCILIZUMAB
     Route: 048
  371. ACTEMRA [Suspect]
     Active Substance: TOCILIZUMAB
     Route: 042
  372. ACTEMRA [Suspect]
     Active Substance: TOCILIZUMAB
     Route: 042
  373. ACTEMRA [Suspect]
     Active Substance: TOCILIZUMAB
     Route: 042
  374. ACTEMRA [Suspect]
     Active Substance: TOCILIZUMAB
  375. ACTEMRA [Suspect]
     Active Substance: TOCILIZUMAB
     Route: 016
  376. ACTEMRA [Suspect]
     Active Substance: TOCILIZUMAB
  377. ACTEMRA [Suspect]
     Active Substance: TOCILIZUMAB
     Route: 048
  378. ACTEMRA [Suspect]
     Active Substance: TOCILIZUMAB
     Dosage: 2912 MG, WE (2912 MG, QW),
     Route: 042
  379. ACTEMRA [Suspect]
     Active Substance: TOCILIZUMAB
     Route: 042
  380. PREDNISONE [Suspect]
     Active Substance: PREDNISONE
     Indication: Systemic lupus erythematosus
  381. PREDNISONE [Suspect]
     Active Substance: PREDNISONE
     Indication: Pemphigus
  382. PREDNISONE [Suspect]
     Active Substance: PREDNISONE
     Indication: Synovitis
     Route: 048
  383. PREDNISONE [Suspect]
     Active Substance: PREDNISONE
     Indication: Psoriatic arthropathy
  384. PREDNISONE [Suspect]
     Active Substance: PREDNISONE
     Indication: Rheumatoid arthritis
     Route: 048
  385. PREDNISONE [Suspect]
     Active Substance: PREDNISONE
     Indication: Bursitis
  386. PREDNISONE [Suspect]
     Active Substance: PREDNISONE
     Indication: Inflammation
  387. PREDNISONE [Suspect]
     Active Substance: PREDNISONE
     Indication: Product used for unknown indication
  388. PREDNISONE [Suspect]
     Active Substance: PREDNISONE
  389. PREDNISONE [Suspect]
     Active Substance: PREDNISONE
     Route: 048
  390. PREDNISONE [Suspect]
     Active Substance: PREDNISONE
     Route: 048
  391. PREDNISONE [Suspect]
     Active Substance: PREDNISONE
     Route: 048
  392. PREDNISONE [Suspect]
     Active Substance: PREDNISONE
  393. ORENCIA [Suspect]
     Active Substance: ABATACEPT
     Indication: Rheumatoid arthritis
  394. ORENCIA [Suspect]
     Active Substance: ABATACEPT
     Indication: Product used for unknown indication
     Dosage: 17.875 MG, QD, ROA: INTRAVENOUS DRIP
  395. ORENCIA [Suspect]
     Active Substance: ABATACEPT
     Dosage: 125 MG, WE (125 MG, QW), ROA: SUBCUTANEOUS
  396. ORENCIA [Suspect]
     Active Substance: ABATACEPT
     Route: 042
  397. ORENCIA [Suspect]
     Active Substance: ABATACEPT
  398. ORENCIA [Suspect]
     Active Substance: ABATACEPT
     Dosage: ROA: UNKNOWN
  399. ORENCIA [Suspect]
     Active Substance: ABATACEPT
     Route: 015
  400. ORENCIA [Suspect]
     Active Substance: ABATACEPT
     Dosage: 18 MG, QD, ROA: SUBCUTANEOUS
  401. ORENCIA [Suspect]
     Active Substance: ABATACEPT
     Dosage: 17.875 MG, QD, ROA: SUBCUTANEOUS
     Route: 058
  402. ORENCIA [Suspect]
     Active Substance: ABATACEPT
  403. ORENCIA [Suspect]
     Active Substance: ABATACEPT
     Route: 042
  404. ORENCIA [Suspect]
     Active Substance: ABATACEPT
     Route: 042
  405. ORENCIA [Suspect]
     Active Substance: ABATACEPT
     Dosage: 6 MG, QD (3 MG, BID)
     Route: 048
  406. ORENCIA [Suspect]
     Active Substance: ABATACEPT
     Dosage: 125 MG, WE (125 MG, QW), ROA: SUBCUTANEOUS
  407. ORENCIA [Suspect]
     Active Substance: ABATACEPT
     Dosage: 120 MG, WE (120 MG, QW), ROA: SUBCUTANEOUS
     Route: 058
  408. ORENCIA [Suspect]
     Active Substance: ABATACEPT
  409. ORENCIA [Suspect]
     Active Substance: ABATACEPT
  410. ORENCIA [Suspect]
     Active Substance: ABATACEPT
  411. ORENCIA [Suspect]
     Active Substance: ABATACEPT
     Route: 017
  412. ORENCIA [Suspect]
     Active Substance: ABATACEPT
  413. ORENCIA [Suspect]
     Active Substance: ABATACEPT
     Dosage: 125 MG, WE (125 MG, QW)
     Route: 048
  414. ORENCIA [Suspect]
     Active Substance: ABATACEPT
  415. ORENCIA [Suspect]
     Active Substance: ABATACEPT
     Route: 017
  416. ORENCIA [Suspect]
     Active Substance: ABATACEPT
     Route: 048
  417. ORENCIA [Suspect]
     Active Substance: ABATACEPT
     Route: 042
  418. ORENCIA [Suspect]
     Active Substance: ABATACEPT
     Dosage: 125 MG, WE (125 MG, QW)
  419. ORENCIA [Suspect]
     Active Substance: ABATACEPT
     Dosage: 18 MG, QD, ROA: SUBCUTANEOUS
     Route: 058
  420. STELARA [Suspect]
     Active Substance: USTEKINUMAB
     Indication: Product used for unknown indication
  421. STELARA [Suspect]
     Active Substance: USTEKINUMAB
     Indication: Rheumatoid arthritis
     Route: 042
  422. STELARA [Suspect]
     Active Substance: USTEKINUMAB
     Route: 042
  423. STELARA [Suspect]
     Active Substance: USTEKINUMAB
  424. STELARA [Suspect]
     Active Substance: USTEKINUMAB
  425. STELARA [Suspect]
     Active Substance: USTEKINUMAB
  426. DILTIAZEM [Suspect]
     Active Substance: DILTIAZEM
     Indication: Product used for unknown indication
  427. TUMS ULTRA [Suspect]
     Active Substance: CALCIUM CARBONATE
     Indication: Product used for unknown indication
  428. FOSAMAX [Suspect]
     Active Substance: ALENDRONATE SODIUM
     Indication: Rheumatoid arthritis
  429. FOSAMAX [Suspect]
     Active Substance: ALENDRONATE SODIUM
     Indication: Product used for unknown indication
     Route: 048
  430. FOSAMAX [Suspect]
     Active Substance: ALENDRONATE SODIUM
     Route: 048
  431. FOSAMAX [Suspect]
     Active Substance: ALENDRONATE SODIUM
  432. FOSAMAX [Suspect]
     Active Substance: ALENDRONATE SODIUM
     Route: 048
  433. FOSAMAX [Suspect]
     Active Substance: ALENDRONATE SODIUM
  434. FOSAMAX [Suspect]
     Active Substance: ALENDRONATE SODIUM
     Route: 016
  435. FOSAMAX [Suspect]
     Active Substance: ALENDRONATE SODIUM
     Route: 048
  436. FOSAMAX [Suspect]
     Active Substance: ALENDRONATE SODIUM
     Route: 005
  437. FOSAMAX [Suspect]
     Active Substance: ALENDRONATE SODIUM
     Route: 005
  438. FOSAMAX [Suspect]
     Active Substance: ALENDRONATE SODIUM
     Route: 005
  439. FOSAMAX [Suspect]
     Active Substance: ALENDRONATE SODIUM
     Route: 016
  440. FOSAMAX [Suspect]
     Active Substance: ALENDRONATE SODIUM
  441. FOSAMAX [Suspect]
     Active Substance: ALENDRONATE SODIUM
     Route: 048
  442. FOSAMAX [Suspect]
     Active Substance: ALENDRONATE SODIUM
     Route: 048
  443. FOSAMAX [Suspect]
     Active Substance: ALENDRONATE SODIUM
  444. FOSAMAX [Suspect]
     Active Substance: ALENDRONATE SODIUM
  445. FOSAMAX [Suspect]
     Active Substance: ALENDRONATE SODIUM
     Route: 048
  446. FOSAMAX [Suspect]
     Active Substance: ALENDRONATE SODIUM
     Route: 005
  447. FOSAMAX [Suspect]
     Active Substance: ALENDRONATE SODIUM
  448. FOSAMAX [Suspect]
     Active Substance: ALENDRONATE SODIUM
  449. FOSAMAX [Suspect]
     Active Substance: ALENDRONATE SODIUM
     Route: 048
  450. FOSAMAX [Suspect]
     Active Substance: ALENDRONATE SODIUM
     Route: 048
  451. FOSAMAX [Suspect]
     Active Substance: ALENDRONATE SODIUM
     Route: 048
  452. FOSAMAX [Suspect]
     Active Substance: ALENDRONATE SODIUM
     Route: 048
  453. TUMS ULTRA [Suspect]
     Active Substance: CALCIUM CARBONATE
     Indication: Product used for unknown indication
  454. TUMS ULTRA [Suspect]
     Active Substance: CALCIUM CARBONATE
  455. CHLORHEXIDINE GLUCONATE [Suspect]
     Active Substance: CHLORHEXIDINE GLUCONATE
     Indication: Product used for unknown indication
  456. CHLORHEXIDINE GLUCONATE [Suspect]
     Active Substance: CHLORHEXIDINE GLUCONATE
  457. CHLORHEXIDINE GLUCONATE [Suspect]
     Active Substance: CHLORHEXIDINE GLUCONATE
  458. CHLORHEXIDINE GLUCONATE [Suspect]
     Active Substance: CHLORHEXIDINE GLUCONATE
  459. CHLORHEXIDINE GLUCONATE [Suspect]
     Active Substance: CHLORHEXIDINE GLUCONATE
     Route: 002
  460. CHLORHEXIDINE GLUCONATE [Suspect]
     Active Substance: CHLORHEXIDINE GLUCONATE
     Route: 002
  461. CHLORHEXIDINE GLUCONATE [Suspect]
     Active Substance: CHLORHEXIDINE GLUCONATE
  462. CHLORHEXIDINE GLUCONATE [Suspect]
     Active Substance: CHLORHEXIDINE GLUCONATE
  463. CHLORHEXIDINE GLUCONATE [Suspect]
     Active Substance: CHLORHEXIDINE GLUCONATE
     Route: 048
  464. MOXIFLOXACIN [Suspect]
     Active Substance: MOXIFLOXACIN
     Indication: Product used for unknown indication
  465. TOFACITINIB CITRATE [Suspect]
     Active Substance: TOFACITINIB CITRATE
     Indication: Product used for unknown indication
     Route: 048
  466. TOFACITINIB CITRATE [Suspect]
     Active Substance: TOFACITINIB CITRATE
     Indication: Psoriatic arthropathy
     Route: 048
  467. TOFACITINIB CITRATE [Suspect]
     Active Substance: TOFACITINIB CITRATE
     Indication: Rheumatoid arthritis
  468. TOFACITINIB CITRATE [Suspect]
     Active Substance: TOFACITINIB CITRATE
     Dosage: ROA: UNKNOWN
  469. TOFACITINIB CITRATE [Suspect]
     Active Substance: TOFACITINIB CITRATE
  470. HYDROCORTISONE SODIUM SUCCINATE [Suspect]
     Active Substance: HYDROCORTISONE SODIUM SUCCINATE
     Indication: Rheumatoid arthritis
  471. HYDROCORTISONE SODIUM SUCCINATE [Suspect]
     Active Substance: HYDROCORTISONE SODIUM SUCCINATE
     Indication: Product used for unknown indication
     Route: 003
  472. HYDROCORTISONE SODIUM SUCCINATE [Suspect]
     Active Substance: HYDROCORTISONE SODIUM SUCCINATE
  473. HYDROCORTISONE SODIUM SUCCINATE [Suspect]
     Active Substance: HYDROCORTISONE SODIUM SUCCINATE
  474. HYDROCORTISONE SODIUM SUCCINATE [Suspect]
     Active Substance: HYDROCORTISONE SODIUM SUCCINATE
  475. HYDROCORTISONE SODIUM SUCCINATE [Suspect]
     Active Substance: HYDROCORTISONE SODIUM SUCCINATE
  476. HYDROCORTISONE SODIUM SUCCINATE [Suspect]
     Active Substance: HYDROCORTISONE SODIUM SUCCINATE
  477. HYDROCORTISONE SODIUM SUCCINATE [Suspect]
     Active Substance: HYDROCORTISONE SODIUM SUCCINATE
  478. HYDROCORTISONE SODIUM SUCCINATE [Suspect]
     Active Substance: HYDROCORTISONE SODIUM SUCCINATE
     Route: 048
  479. HYDROCORTISONE SODIUM SUCCINATE [Suspect]
     Active Substance: HYDROCORTISONE SODIUM SUCCINATE
  480. HYDROXYCHLOROQUINE [Suspect]
     Active Substance: HYDROXYCHLOROQUINE
     Indication: Product used for unknown indication
     Route: 048
  481. HYDROXYCHLOROQUINE [Suspect]
     Active Substance: HYDROXYCHLOROQUINE
     Indication: Rheumatoid arthritis
     Route: 048
  482. HYDROXYCHLOROQUINE [Suspect]
     Active Substance: HYDROXYCHLOROQUINE
  483. HYDROXYCHLOROQUINE [Suspect]
     Active Substance: HYDROXYCHLOROQUINE
     Dosage: ROA: UNKNOWN
  484. HYDROXYCHLOROQUINE [Suspect]
     Active Substance: HYDROXYCHLOROQUINE
     Dosage: ROA: UNKNOWN
  485. HYDROXYCHLOROQUINE [Suspect]
     Active Substance: HYDROXYCHLOROQUINE
  486. HYDROXYCHLOROQUINE [Suspect]
     Active Substance: HYDROXYCHLOROQUINE
  487. HYDROXYCHLOROQUINE [Suspect]
     Active Substance: HYDROXYCHLOROQUINE
  488. HYDROXYCHLOROQUINE [Suspect]
     Active Substance: HYDROXYCHLOROQUINE
     Dosage: ROA: UNKNOWN
  489. HYDROXYCHLOROQUINE [Suspect]
     Active Substance: HYDROXYCHLOROQUINE
  490. HYDROXYCHLOROQUINE [Suspect]
     Active Substance: HYDROXYCHLOROQUINE
     Route: 048
  491. HYDROXYCHLOROQUINE [Suspect]
     Active Substance: HYDROXYCHLOROQUINE
     Dosage: ROA: UNKNOWN
  492. HYDROXYCHLOROQUINE [Suspect]
     Active Substance: HYDROXYCHLOROQUINE
  493. HYDROXYCHLOROQUINE [Suspect]
     Active Substance: HYDROXYCHLOROQUINE
     Dosage: ROA: UNKNOWN
  494. HYDROXYCHLOROQUINE [Suspect]
     Active Substance: HYDROXYCHLOROQUINE
     Dosage: ROA: UNKNOWN
  495. HYDROXYCHLOROQUINE [Suspect]
     Active Substance: HYDROXYCHLOROQUINE
  496. HYDROXYCHLOROQUINE [Suspect]
     Active Substance: HYDROXYCHLOROQUINE
  497. CETIRIZINE HYDROCHLORIDE [Suspect]
     Active Substance: CETIRIZINE HYDROCHLORIDE
     Indication: Product used for unknown indication
  498. CETIRIZINE HYDROCHLORIDE [Suspect]
     Active Substance: CETIRIZINE HYDROCHLORIDE
     Indication: Rheumatoid arthritis
     Dosage: ROA: UNKNOWN
  499. CETIRIZINE HYDROCHLORIDE [Suspect]
     Active Substance: CETIRIZINE HYDROCHLORIDE
     Route: 016
  500. DOXYCYCLINE HYCLATE [Suspect]
     Active Substance: DOXYCYCLINE HYCLATE
     Indication: Product used for unknown indication
  501. ENBREL [Suspect]
     Active Substance: ETANERCEPT
     Indication: Psoriatic arthropathy
     Dosage: 20 MG, QD, ROA: SUBCUTANEOUS
  502. ENBREL [Suspect]
     Active Substance: ETANERCEPT
     Indication: Rheumatoid arthritis
  503. ENBREL [Suspect]
     Active Substance: ETANERCEPT
     Indication: Product used for unknown indication
  504. ENBREL [Suspect]
     Active Substance: ETANERCEPT
  505. ENBREL [Suspect]
     Active Substance: ETANERCEPT
     Dosage: 20 MG, ROA: SUBCUTANEOUS
  506. ENBREL [Suspect]
     Active Substance: ETANERCEPT
  507. ENBREL [Suspect]
     Active Substance: ETANERCEPT
     Dosage: 50 MG, WE (50 MG, QW), ROA: SUBCUTANEOUS
  508. ENBREL [Suspect]
     Active Substance: ETANERCEPT
  509. ENBREL [Suspect]
     Active Substance: ETANERCEPT
  510. XELJANZ [Suspect]
     Active Substance: TOFACITINIB CITRATE
     Indication: Product used for unknown indication
  511. XELJANZ [Suspect]
     Active Substance: TOFACITINIB CITRATE
     Indication: Rheumatoid arthritis
     Route: 048
  512. XELJANZ [Suspect]
     Active Substance: TOFACITINIB CITRATE
  513. XELJANZ [Suspect]
     Active Substance: TOFACITINIB CITRATE
     Dosage: ROA: UNKNOWN
  514. XELJANZ [Suspect]
     Active Substance: TOFACITINIB CITRATE
     Dosage: ROA: UNKNOWN
  515. XELJANZ [Suspect]
     Active Substance: TOFACITINIB CITRATE
     Route: 048
  516. XELJANZ [Suspect]
     Active Substance: TOFACITINIB CITRATE
  517. XELJANZ [Suspect]
     Active Substance: TOFACITINIB CITRATE
  518. XELJANZ [Suspect]
     Active Substance: TOFACITINIB CITRATE
     Dosage: ROA: UNKNOWN
  519. XELJANZ [Suspect]
     Active Substance: TOFACITINIB CITRATE
  520. XELJANZ [Suspect]
     Active Substance: TOFACITINIB CITRATE
  521. XELJANZ [Suspect]
     Active Substance: TOFACITINIB CITRATE
  522. XELJANZ [Suspect]
     Active Substance: TOFACITINIB CITRATE
     Dosage: ROA: UNKNOWN
  523. INFLIXIMAB [Suspect]
     Active Substance: INFLIXIMAB
     Indication: Rheumatoid arthritis
     Route: 042
  524. INFLIXIMAB [Suspect]
     Active Substance: INFLIXIMAB
  525. INFLIXIMAB [Suspect]
     Active Substance: INFLIXIMAB
     Route: 042
  526. INFLIXIMAB [Suspect]
     Active Substance: INFLIXIMAB
     Route: 042
  527. INFLIXIMAB [Suspect]
     Active Substance: INFLIXIMAB
  528. LEFLUNOMIDE [Suspect]
     Active Substance: LEFLUNOMIDE
     Indication: Rheumatoid arthritis
     Route: 048
  529. LEFLUNOMIDE [Suspect]
     Active Substance: LEFLUNOMIDE
     Indication: Product used for unknown indication
     Route: 048
  530. LEFLUNOMIDE [Suspect]
     Active Substance: LEFLUNOMIDE
     Route: 048
  531. LEFLUNOMIDE [Suspect]
     Active Substance: LEFLUNOMIDE
  532. LEFLUNOMIDE [Suspect]
     Active Substance: LEFLUNOMIDE
     Route: 048
  533. LEFLUNOMIDE [Suspect]
     Active Substance: LEFLUNOMIDE
  534. ERELZI [Suspect]
     Active Substance: ETANERCEPT-SZZS
     Indication: Rheumatoid arthritis
     Dosage: 50 MG, WE (50 MG, QW), DOSE FORM : UNKNOWN, ROA: UNKNOWN
     Route: 058
  535. ERELZI [Suspect]
     Active Substance: ETANERCEPT-SZZS
     Indication: Product used for unknown indication
     Route: 058
  536. ERELZI [Suspect]
     Active Substance: ETANERCEPT-SZZS
  537. ERELZI [Suspect]
     Active Substance: ETANERCEPT-SZZS
  538. ERELZI [Suspect]
     Active Substance: ETANERCEPT-SZZS
     Dosage: 50 MG, WE (50 MG, QW), DOSE FORM AND ROA: UNKNOWN
  539. ERELZI [Suspect]
     Active Substance: ETANERCEPT-SZZS
  540. ERELZI [Suspect]
     Active Substance: ETANERCEPT-SZZS
  541. ERELZI [Suspect]
     Active Substance: ETANERCEPT-SZZS
     Dosage: DOSE FORM AND ROA: UNKNOWN
  542. ERELZI [Suspect]
     Active Substance: ETANERCEPT-SZZS
     Dosage: DOSE FORM AND ROA: UNKNOWN
  543. ERELZI [Suspect]
     Active Substance: ETANERCEPT-SZZS
     Dosage: DOSE FORM AND ROA: UNKNOWN
  544. CELECOXIB [Suspect]
     Active Substance: CELECOXIB
     Indication: Product used for unknown indication
  545. CELECOXIB [Suspect]
     Active Substance: CELECOXIB
     Indication: Rheumatoid arthritis
     Dosage: 1 DF, QD (1 DOSAGE FORM, QD), ROA: UNKNOWN
  546. CERTOLIZUMAB PEGOL [Suspect]
     Active Substance: CERTOLIZUMAB PEGOL
     Indication: Product used for unknown indication
  547. CERTOLIZUMAB PEGOL [Suspect]
     Active Substance: CERTOLIZUMAB PEGOL
  548. LEFLUNOMIDE [Suspect]
     Active Substance: LEFLUNOMIDE
     Indication: Rheumatoid arthritis
     Route: 048
  549. LEFLUNOMIDE [Suspect]
     Active Substance: LEFLUNOMIDE
     Route: 048
  550. LEFLUNOMIDE [Suspect]
     Active Substance: LEFLUNOMIDE
  551. LEFLUNOMIDE [Suspect]
     Active Substance: LEFLUNOMIDE
     Route: 048
  552. CORTISONE ACETATE [Suspect]
     Active Substance: CORTISONE ACETATE
     Indication: Product used for unknown indication
  553. CORTISONE ACETATE [Suspect]
     Active Substance: CORTISONE ACETATE
     Indication: Rheumatoid arthritis
     Route: 048
  554. CORTISONE ACETATE [Suspect]
     Active Substance: CORTISONE ACETATE
     Route: 048
  555. CORTISONE ACETATE [Suspect]
     Active Substance: CORTISONE ACETATE
  556. CORTISONE ACETATE [Suspect]
     Active Substance: CORTISONE ACETATE
  557. CORTISONE ACETATE [Suspect]
     Active Substance: CORTISONE ACETATE
  558. CORTISONE ACETATE [Suspect]
     Active Substance: CORTISONE ACETATE
  559. ALENDRONIC ACID [Suspect]
     Active Substance: ALENDRONIC ACID
     Indication: Rheumatoid arthritis
     Route: 048
  560. ALENDRONIC ACID [Suspect]
     Active Substance: ALENDRONIC ACID
  561. ALENDRONIC ACID [Suspect]
     Active Substance: ALENDRONIC ACID
  562. ALENDRONIC ACID [Suspect]
     Active Substance: ALENDRONIC ACID
     Route: 016
  563. ALENDRONIC ACID [Suspect]
     Active Substance: ALENDRONIC ACID
     Route: 048
  564. SULFAMETHOXAZOLE AND TRIMETHOPRIM [Suspect]
     Active Substance: SULFAMETHOXAZOLE\TRIMETHOPRIM
     Indication: Product used for unknown indication
  565. SULFAMETHOXAZOLE AND TRIMETHOPRIM [Suspect]
     Active Substance: SULFAMETHOXAZOLE\TRIMETHOPRIM
     Route: 067
  566. SULFAMETHOXAZOLE AND TRIMETHOPRIM [Suspect]
     Active Substance: SULFAMETHOXAZOLE\TRIMETHOPRIM
  567. SULFAMETHOXAZOLE AND TRIMETHOPRIM [Suspect]
     Active Substance: SULFAMETHOXAZOLE\TRIMETHOPRIM
  568. OTEZLA [Suspect]
     Active Substance: APREMILAST
     Indication: Product used for unknown indication
     Dosage: 6 MG, QD (3 MG, BID)
     Route: 048
  569. OTEZLA [Suspect]
     Active Substance: APREMILAST
     Dosage: 6 MG, QD (3 MG, BID), ROA: UNKNOWN
  570. GOLIMUMAB [Suspect]
     Active Substance: GOLIMUMAB
     Indication: Rheumatoid arthritis
  571. GOLIMUMAB [Suspect]
     Active Substance: GOLIMUMAB
  572. HYDROXYCHLOROQUINE SULFATE [Suspect]
     Active Substance: HYDROXYCHLOROQUINE SULFATE
     Indication: Rheumatoid arthritis
     Route: 048
  573. HYDROXYCHLOROQUINE SULFATE [Suspect]
     Active Substance: HYDROXYCHLOROQUINE SULFATE
     Indication: Systemic lupus erythematosus
  574. HYDROXYCHLOROQUINE SULFATE [Suspect]
     Active Substance: HYDROXYCHLOROQUINE SULFATE
     Route: 048
  575. HYDROXYCHLOROQUINE SULFATE [Suspect]
     Active Substance: HYDROXYCHLOROQUINE SULFATE
     Dosage: 40 MG, QD, ROA: UNKNOWN
  576. HYDROXYCHLOROQUINE SULFATE [Suspect]
     Active Substance: HYDROXYCHLOROQUINE SULFATE
     Route: 048
  577. HYDROXYCHLOROQUINE SULFATE [Suspect]
     Active Substance: HYDROXYCHLOROQUINE SULFATE
  578. HYDROXYCHLOROQUINE SULFATE [Suspect]
     Active Substance: HYDROXYCHLOROQUINE SULFATE
     Route: 048
  579. HYDROXYCHLOROQUINE SULFATE [Suspect]
     Active Substance: HYDROXYCHLOROQUINE SULFATE
     Route: 048
  580. HYDROXYCHLOROQUINE SULFATE [Suspect]
     Active Substance: HYDROXYCHLOROQUINE SULFATE
  581. HYDROXYCHLOROQUINE SULFATE [Suspect]
     Active Substance: HYDROXYCHLOROQUINE SULFATE
  582. COD LIVER OIL [Suspect]
     Active Substance: COD LIVER OIL
     Indication: Product used for unknown indication
  583. DICLOFENAC SODIUM [Suspect]
     Active Substance: DICLOFENAC SODIUM
     Indication: Product used for unknown indication
     Route: 048
  584. DICLOFENAC SODIUM [Suspect]
     Active Substance: DICLOFENAC SODIUM
  585. DICLOFENAC SODIUM [Suspect]
     Active Substance: DICLOFENAC SODIUM
  586. DICLOFENAC SODIUM [Suspect]
     Active Substance: DICLOFENAC SODIUM
  587. PERIOGARD [Suspect]
     Active Substance: CHLORHEXIDINE GLUCONATE
     Indication: Product used for unknown indication
     Dosage: ROA: UNKNOWN
  588. PERIOGARD [Suspect]
     Active Substance: CHLORHEXIDINE GLUCONATE
     Route: 002
  589. PERIOGARD [Suspect]
     Active Substance: CHLORHEXIDINE GLUCONATE
     Route: 048
  590. PERIOGARD [Suspect]
     Active Substance: CHLORHEXIDINE GLUCONATE
  591. PREGABALIN [Suspect]
     Active Substance: PREGABALIN
     Indication: Product used for unknown indication
  592. PHTHALYLSULFATHIAZOLE [Suspect]
     Active Substance: PHTHALYLSULFATHIAZOLE
     Indication: Rheumatoid arthritis
     Route: 042
  593. PHTHALYLSULFATHIAZOLE [Suspect]
     Active Substance: PHTHALYLSULFATHIAZOLE
     Indication: Product used for unknown indication
  594. PHTHALYLSULFATHIAZOLE [Suspect]
     Active Substance: PHTHALYLSULFATHIAZOLE
     Dosage: DURATION 365 DAYS
     Route: 048
  595. PHTHALYLSULFATHIAZOLE [Suspect]
     Active Substance: PHTHALYLSULFATHIAZOLE
     Route: 048
  596. PHTHALYLSULFATHIAZOLE [Suspect]
     Active Substance: PHTHALYLSULFATHIAZOLE
     Route: 048
  597. PHTHALYLSULFATHIAZOLE [Suspect]
     Active Substance: PHTHALYLSULFATHIAZOLE
  598. PHTHALYLSULFATHIAZOLE [Suspect]
     Active Substance: PHTHALYLSULFATHIAZOLE
     Dosage: DURATION 365 DAYS
     Route: 048
  599. PHTHALYLSULFATHIAZOLE [Suspect]
     Active Substance: PHTHALYLSULFATHIAZOLE
     Route: 016
  600. PHTHALYLSULFATHIAZOLE [Suspect]
     Active Substance: PHTHALYLSULFATHIAZOLE
  601. PHTHALYLSULFATHIAZOLE [Suspect]
     Active Substance: PHTHALYLSULFATHIAZOLE
     Dosage: DURATION 365 DAYS, ROA: UNKNOWN
  602. PHTHALYLSULFATHIAZOLE [Suspect]
     Active Substance: PHTHALYLSULFATHIAZOLE
  603. PHTHALYLSULFATHIAZOLE [Suspect]
     Active Substance: PHTHALYLSULFATHIAZOLE
     Dosage: DURATION 365 DAYS
     Route: 048
  604. PHTHALYLSULFATHIAZOLE [Suspect]
     Active Substance: PHTHALYLSULFATHIAZOLE
     Route: 048
  605. PHTHALYLSULFATHIAZOLE [Suspect]
     Active Substance: PHTHALYLSULFATHIAZOLE
     Route: 048
  606. PHTHALYLSULFATHIAZOLE [Suspect]
     Active Substance: PHTHALYLSULFATHIAZOLE
  607. PHTHALYLSULFATHIAZOLE [Suspect]
     Active Substance: PHTHALYLSULFATHIAZOLE
  608. PHTHALYLSULFATHIAZOLE [Suspect]
     Active Substance: PHTHALYLSULFATHIAZOLE
     Dosage: ROA: UNKNOWN
  609. PHTHALYLSULFATHIAZOLE [Suspect]
     Active Substance: PHTHALYLSULFATHIAZOLE
  610. PHTHALYLSULFATHIAZOLE [Suspect]
     Active Substance: PHTHALYLSULFATHIAZOLE
     Dosage: DURATION 365 DAYS
  611. PHTHALYLSULFATHIAZOLE [Suspect]
     Active Substance: PHTHALYLSULFATHIAZOLE
     Dosage: DURATION 365 DAYS
  612. PHTHALYLSULFATHIAZOLE [Suspect]
     Active Substance: PHTHALYLSULFATHIAZOLE
  613. CETIRIZINE HYDROCHLORIDE\PSEUDOEPHEDRINE HYDROCHLORIDE [Suspect]
     Active Substance: CETIRIZINE HYDROCHLORIDE\PSEUDOEPHEDRINE HYDROCHLORIDE
     Indication: Product used for unknown indication
     Route: 048
  614. CETIRIZINE HYDROCHLORIDE\PSEUDOEPHEDRINE HYDROCHLORIDE [Suspect]
     Active Substance: CETIRIZINE HYDROCHLORIDE\PSEUDOEPHEDRINE HYDROCHLORIDE
     Indication: Rheumatoid arthritis
  615. CETIRIZINE HYDROCHLORIDE\PSEUDOEPHEDRINE HYDROCHLORIDE [Suspect]
     Active Substance: CETIRIZINE HYDROCHLORIDE\PSEUDOEPHEDRINE HYDROCHLORIDE
  616. CETIRIZINE HYDROCHLORIDE\PSEUDOEPHEDRINE HYDROCHLORIDE [Suspect]
     Active Substance: CETIRIZINE HYDROCHLORIDE\PSEUDOEPHEDRINE HYDROCHLORIDE
  617. CETIRIZINE HYDROCHLORIDE\PSEUDOEPHEDRINE HYDROCHLORIDE [Suspect]
     Active Substance: CETIRIZINE HYDROCHLORIDE\PSEUDOEPHEDRINE HYDROCHLORIDE
  618. CETIRIZINE HYDROCHLORIDE\PSEUDOEPHEDRINE HYDROCHLORIDE [Suspect]
     Active Substance: CETIRIZINE HYDROCHLORIDE\PSEUDOEPHEDRINE HYDROCHLORIDE
  619. SIMPONI [Suspect]
     Active Substance: GOLIMUMAB
     Indication: Psoriatic arthropathy
     Route: 058
  620. SIMPONI [Suspect]
     Active Substance: GOLIMUMAB
     Indication: Rheumatoid arthritis
     Route: 042
  621. SIMPONI [Suspect]
     Active Substance: GOLIMUMAB
     Route: 052
  622. SIMPONI [Suspect]
     Active Substance: GOLIMUMAB
  623. SIMPONI [Suspect]
     Active Substance: GOLIMUMAB
     Route: 058
  624. SIMPONI [Suspect]
     Active Substance: GOLIMUMAB
  625. SIMPONI [Suspect]
     Active Substance: GOLIMUMAB
  626. SIMPONI [Suspect]
     Active Substance: GOLIMUMAB
  627. SIMPONI [Suspect]
     Active Substance: GOLIMUMAB
  628. SIMPONI [Suspect]
     Active Substance: GOLIMUMAB
  629. SULFAMETHOXAZOLE [Suspect]
     Active Substance: SULFAMETHOXAZOLE
     Indication: Rheumatoid arthritis
  630. CALTRATE [Suspect]
     Active Substance: CALCIUM CARBONATE
     Indication: Product used for unknown indication
  631. ASACOL [Suspect]
     Active Substance: MESALAMINE
     Indication: Product used for unknown indication
  632. IODINE [Suspect]
     Active Substance: IODINE
     Indication: Product used for unknown indication
  633. PANADOL [Suspect]
     Active Substance: ACETAMINOPHEN
     Indication: Rheumatoid arthritis
  634. PANADOL [Suspect]
     Active Substance: ACETAMINOPHEN
     Indication: Pyrexia
  635. PANADOL [Suspect]
     Active Substance: ACETAMINOPHEN
     Indication: Pain
  636. DICLOFENAC SODIUM [Suspect]
     Active Substance: DICLOFENAC SODIUM
     Indication: Product used for unknown indication
  637. DICLOFENAC SODIUM [Suspect]
     Active Substance: DICLOFENAC SODIUM
  638. DICLOFENAC SODIUM [Suspect]
     Active Substance: DICLOFENAC SODIUM
     Route: 048
  639. DICLOFENAC SODIUM [Suspect]
     Active Substance: DICLOFENAC SODIUM
     Indication: Product used for unknown indication
  640. DICLOFENAC SODIUM [Suspect]
     Active Substance: DICLOFENAC SODIUM
  641. DICLOFENAC SODIUM [Suspect]
     Active Substance: DICLOFENAC SODIUM
     Indication: Rheumatoid arthritis
  642. DICLOFENAC SODIUM [Suspect]
     Active Substance: DICLOFENAC SODIUM
     Indication: Inflammation
     Dosage: ROA: UNKNOWN
  643. DICLOFENAC SODIUM [Suspect]
     Active Substance: DICLOFENAC SODIUM
     Route: 048
  644. DICLOFENAC SODIUM [Suspect]
     Active Substance: DICLOFENAC SODIUM
     Route: 048
  645. DICLOFENAC SODIUM [Suspect]
     Active Substance: DICLOFENAC SODIUM
  646. DICLOFENAC SODIUM [Suspect]
     Active Substance: DICLOFENAC SODIUM
  647. DICLOFENAC SODIUM [Suspect]
     Active Substance: DICLOFENAC SODIUM
     Route: 048
  648. DICLOFENAC SODIUM [Suspect]
     Active Substance: DICLOFENAC SODIUM
  649. DICLOFENAC SODIUM [Suspect]
     Active Substance: DICLOFENAC SODIUM
  650. DICLOFENAC SODIUM [Suspect]
     Active Substance: DICLOFENAC SODIUM
  651. DICLOFENAC SODIUM [Suspect]
     Active Substance: DICLOFENAC SODIUM
  652. DICLOFENAC SODIUM [Suspect]
     Active Substance: DICLOFENAC SODIUM
  653. DICLOFENAC SODIUM [Suspect]
     Active Substance: DICLOFENAC SODIUM
  654. DICLOFENAC SODIUM [Suspect]
     Active Substance: DICLOFENAC SODIUM
  655. DICLOFENAC SODIUM [Suspect]
     Active Substance: DICLOFENAC SODIUM
  656. DICLOFENAC SODIUM [Suspect]
     Active Substance: DICLOFENAC SODIUM
     Route: 048
  657. DICLOFENAC SODIUM [Suspect]
     Active Substance: DICLOFENAC SODIUM
  658. ASACOL [Suspect]
     Active Substance: MESALAMINE
     Indication: Product used for unknown indication
  659. APREPITANT [Suspect]
     Active Substance: APREPITANT
     Indication: Product used for unknown indication
     Route: 048
  660. APREPITANT [Suspect]
     Active Substance: APREPITANT
  661. APREPITANT [Suspect]
     Active Substance: APREPITANT
     Route: 042
  662. APREPITANT [Suspect]
     Active Substance: APREPITANT
     Route: 042
  663. INFLIXIMAB [Suspect]
     Active Substance: INFLIXIMAB
     Indication: Rheumatoid arthritis
     Route: 042
  664. INFLIXIMAB [Suspect]
     Active Substance: INFLIXIMAB
     Route: 042
  665. INFLIXIMAB [Suspect]
     Active Substance: INFLIXIMAB
     Route: 042
  666. INFLIXIMAB [Suspect]
     Active Substance: INFLIXIMAB
  667. INFLIXIMAB [Suspect]
     Active Substance: INFLIXIMAB
  668. ORENCIA [Suspect]
     Active Substance: ABATACEPT
     Indication: Rheumatoid arthritis
     Dosage: 3 MG,  (1 EVERY .5 DAYS)
     Route: 048
  669. ORENCIA [Suspect]
     Active Substance: ABATACEPT
     Dosage: UNK, QD
     Route: 048
  670. ORENCIA [Suspect]
     Active Substance: ABATACEPT
     Dosage: 120 MG, QW, ROA: SUBCUTANEOUS
  671. ORENCIA [Suspect]
     Active Substance: ABATACEPT
  672. ORENCIA [Suspect]
     Active Substance: ABATACEPT
     Dosage: UNK, QD
     Route: 017
  673. ORENCIA [Suspect]
     Active Substance: ABATACEPT
     Route: 042
  674. ORENCIA [Suspect]
     Active Substance: ABATACEPT
     Route: 042
  675. ORENCIA [Suspect]
     Active Substance: ABATACEPT
  676. ORENCIA [Suspect]
     Active Substance: ABATACEPT
     Dosage: 17.875 MG, QD, ROA: SUBCUTANEOUS
  677. ORENCIA [Suspect]
     Active Substance: ABATACEPT
  678. ORENCIA [Suspect]
     Active Substance: ABATACEPT
  679. ORENCIA [Suspect]
     Active Substance: ABATACEPT
     Dosage: ROA: SUBCUTANEOUS
  680. ORENCIA [Suspect]
     Active Substance: ABATACEPT
  681. ORENCIA [Suspect]
     Active Substance: ABATACEPT
  682. ORENCIA [Suspect]
     Active Substance: ABATACEPT
     Dosage: ROA: INTRAVENOUS DRIP
  683. ORENCIA [Suspect]
     Active Substance: ABATACEPT
     Dosage: ROA: SUBCUTANEOUS
  684. ORENCIA [Suspect]
     Active Substance: ABATACEPT
     Route: 048
  685. ORENCIA [Suspect]
     Active Substance: ABATACEPT
     Dosage: 3 MG (1 EVERY 5 DAYS), ROA: UNKNOWN
  686. RITUXIMAB [Suspect]
     Active Substance: RITUXIMAB
     Indication: Rheumatoid arthritis
  687. RITUXIMAB [Suspect]
     Active Substance: RITUXIMAB
     Route: 042
  688. RITUXIMAB [Suspect]
     Active Substance: RITUXIMAB
     Route: 016
  689. RITUXIMAB [Suspect]
     Active Substance: RITUXIMAB
     Route: 042
  690. RITUXIMAB [Suspect]
     Active Substance: RITUXIMAB
  691. DILTIAZEM HYDROCHLORIDE [Suspect]
     Active Substance: DILTIAZEM HYDROCHLORIDE
     Indication: Product used for unknown indication
  692. GOLIMUMAB [Suspect]
     Active Substance: GOLIMUMAB
     Indication: Rheumatoid arthritis
  693. GOLIMUMAB [Suspect]
     Active Substance: GOLIMUMAB
  694. OXYCODONE [Suspect]
     Active Substance: OXYCODONE
     Indication: Product used for unknown indication
  695. FOLIC ACID [Suspect]
     Active Substance: FOLIC ACID
     Indication: Rheumatoid arthritis
  696. FOLIC ACID [Suspect]
     Active Substance: FOLIC ACID
  697. FOLIC ACID [Suspect]
     Active Substance: FOLIC ACID
  698. FOLIC ACID [Suspect]
     Active Substance: FOLIC ACID
  699. FOLIC ACID [Suspect]
     Active Substance: FOLIC ACID
  700. FOLIC ACID [Suspect]
     Active Substance: FOLIC ACID
  701. FOLIC ACID [Suspect]
     Active Substance: FOLIC ACID
     Dosage: 1 MG, QD, ROA: UNKNOWN
  702. FOLIC ACID [Suspect]
     Active Substance: FOLIC ACID
  703. FOLIC ACID [Suspect]
     Active Substance: FOLIC ACID
     Route: 048
  704. FOLIC ACID [Suspect]
     Active Substance: FOLIC ACID
  705. FOLIC ACID [Suspect]
     Active Substance: FOLIC ACID
     Route: 048
  706. FOLIC ACID [Suspect]
     Active Substance: FOLIC ACID
  707. FOLIC ACID [Suspect]
     Active Substance: FOLIC ACID
  708. FOLIC ACID [Suspect]
     Active Substance: FOLIC ACID
     Route: 048
  709. FOLIC ACID [Suspect]
     Active Substance: FOLIC ACID
  710. FOLIC ACID [Suspect]
     Active Substance: FOLIC ACID
     Dosage: 5 MG, QD, ROA: UNKNOWN
  711. FOLIC ACID [Suspect]
     Active Substance: FOLIC ACID
  712. FOLIC ACID [Suspect]
     Active Substance: FOLIC ACID
  713. FOLIC ACID [Suspect]
     Active Substance: FOLIC ACID
     Route: 048
  714. FOLIC ACID [Suspect]
     Active Substance: FOLIC ACID
     Route: 048
  715. ADALIMUMAB [Suspect]
     Active Substance: ADALIMUMAB
     Indication: Rheumatoid arthritis
  716. ADALIMUMAB [Suspect]
     Active Substance: ADALIMUMAB
     Indication: Psoriatic arthropathy
  717. HUMIRA [Suspect]
     Active Substance: ADALIMUMAB
     Indication: Rheumatoid arthritis
  718. HUMIRA [Suspect]
     Active Substance: ADALIMUMAB
     Indication: Psoriatic arthropathy

REACTIONS (63)
  - Hepatic cirrhosis [Fatal]
  - Crohn^s disease [Fatal]
  - Drug-induced liver injury [Fatal]
  - Ear infection [Fatal]
  - Exostosis [Fatal]
  - Foot deformity [Fatal]
  - Joint dislocation [Fatal]
  - Laryngitis [Fatal]
  - Lupus-like syndrome [Fatal]
  - Off label use [Fatal]
  - Hypercholesterolaemia [Fatal]
  - Fibromyalgia [Fatal]
  - Intentional product use issue [Fatal]
  - Bursitis [Fatal]
  - Hypoaesthesia [Fatal]
  - Lower respiratory tract infection [Fatal]
  - Nasopharyngitis [Fatal]
  - X-ray abnormal [Fatal]
  - Alopecia [Fatal]
  - C-reactive protein increased [Fatal]
  - Blister [Fatal]
  - Blood cholesterol increased [Fatal]
  - Decreased appetite [Fatal]
  - Autoimmune disorder [Fatal]
  - Obesity [Fatal]
  - Muscle spasms [Fatal]
  - Anti-cyclic citrullinated peptide antibody [Fatal]
  - Impaired healing [Fatal]
  - Headache [Fatal]
  - Asthenia [Fatal]
  - Glossodynia [Fatal]
  - Confusional state [Fatal]
  - Asthma [Fatal]
  - C-reactive protein abnormal [Fatal]
  - Gastrointestinal disorder [Fatal]
  - Muscle injury [Fatal]
  - Contusion [Fatal]
  - Deep vein thrombosis postoperative [Fatal]
  - Oedema peripheral [Fatal]
  - Chest pain [Fatal]
  - Musculoskeletal stiffness [Fatal]
  - Abdominal pain [Fatal]
  - Drug intolerance [Fatal]
  - Liver injury [Fatal]
  - Condition aggravated [Fatal]
  - Pain in extremity [Fatal]
  - Folliculitis [Fatal]
  - Hypersensitivity [Fatal]
  - Joint swelling [Fatal]
  - Bone erosion [Fatal]
  - Lung disorder [Fatal]
  - Facet joint syndrome [Fatal]
  - Underdose [Fatal]
  - Drug hypersensitivity [Fatal]
  - Lower limb fracture [Fatal]
  - Helicobacter infection [Fatal]
  - Injury [Fatal]
  - Anxiety [Fatal]
  - Musculoskeletal pain [Fatal]
  - Fatigue [Fatal]
  - Gait inability [Fatal]
  - Hand deformity [Fatal]
  - Night sweats [Fatal]
